FAERS Safety Report 11750772 (Version 1)
Quarter: 2015Q4

REPORT INFORMATION
  Report Type: Spontaneous
  Country: None (occurrence: US)
  Receive Date: 20151118
  Receipt Date: 20151118
  Transmission Date: 20160304
  Serious: No
  Sender: FDA-Public Use
  Company Number: US-MATRIXX INITIATIVES, INC.-1044376

PATIENT
  Sex: Female

DRUGS (1)
  1. ZICAM COLD REMEDY NASAL SWABS (ZINC) [Suspect]
     Active Substance: ZINC ACETATE\ZINC GLUCONATE
     Route: 045

REACTIONS (1)
  - Ageusia [Unknown]
